FAERS Safety Report 26143467 (Version 1)
Quarter: 2025Q4

REPORT INFORMATION
  Report Type: Spontaneous
  Country: EU (occurrence: EU)
  Receive Date: 20251211
  Receipt Date: 20251211
  Transmission Date: 20260117
  Serious: Yes (Death)
  Sender: MERCK SHARP & DOHME LLC
  Company Number: None

PATIENT
  Age: 41 Year
  Sex: Female
  Weight: 71 kg

DRUGS (1)
  1. KEYTRUDA [Suspect]
     Active Substance: PEMBROLIZUMAB
     Indication: Neoplasm malignant
     Dosage: 200 MG IV. EVERY 3 WEEKS.
     Route: 042
     Dates: start: 20241213, end: 20250915

REACTIONS (2)
  - Respiratory distress [Fatal]
  - Pneumonitis [Fatal]

NARRATIVE: CASE EVENT DATE: 20250901
